FAERS Safety Report 9351047 (Version 1)
Quarter: 2013Q2

REPORT INFORMATION
  Report Type: Spontaneous
  Country: BR (occurrence: BR)
  Receive Date: 20130617
  Receipt Date: 20130617
  Transmission Date: 20140414
  Serious: Yes (Other)
  Sender: FDA-Public Use
  Company Number: BR-NOVOPROD-379977

PATIENT
  Sex: Female
  Weight: 81 kg

DRUGS (13)
  1. NOVOMIX 30 PENFILL [Suspect]
     Indication: TYPE 2 DIABETES MELLITUS
     Dosage: 25 U BEFORE BREAKFAST, 15 U BEFORE LUNCH AND 25 U BEFORE DINNER
     Route: 058
     Dates: start: 2003
  2. ATORVASTATIN CALCIUM [Concomitant]
     Dosage: 20 MG, 1 TAB
     Route: 048
  3. CLOPIDOGREL BISULFATE [Concomitant]
     Indication: CARDIAC DISORDER
     Dosage: 75 MG, 1 TAB
     Route: 048
  4. NAPRIX [Concomitant]
     Dosage: 5 MG
     Route: 048
  5. BROMAZEPAM AL [Concomitant]
     Dosage: 3 MG, 1 TAB
     Route: 048
  6. SUSTRATE [Concomitant]
     Dosage: 10 MG, 1 TAB IN THE MORNING, 1 TAB AT 10:00, 1 TAB AFTER LUNCH AND 1 TAB AFTER DINNER
     Route: 048
  7. CARDIZEM                           /00489701/ [Concomitant]
     Dosage: 180 MG, 1 TAB
     Route: 048
  8. CAPTOPRIL [Concomitant]
     Dosage: 25MG, 2 TABS IN THE MORNING, 2 TABS AT LUNCH AND 2 TABS AT DINNER
     Route: 048
  9. VASTAREL [Concomitant]
     Dosage: 25 MG, 1 TAB
     Route: 048
  10. AMLO                               /00972402/ [Concomitant]
     Dosage: 5 MG, HALF TAB
     Route: 048
  11. LOSARTAN POTASSIUM [Concomitant]
     Dosage: 2 TAB
     Route: 048
  12. RANITIDINE HYDROCHLORIDE [Concomitant]
     Dosage: 150 MG, 1 TAB
     Route: 048
  13. ASPIRINA PREVENT [Concomitant]
     Dosage: 1 TAB AFTER LUNCH
     Route: 048

REACTIONS (1)
  - Cardiac disorder [Recovered/Resolved]
